FAERS Safety Report 6985953-X (Version None)
Quarter: 2010Q3

REPORT INFORMATION
  Report Type: 
  Country: None (occurrence: None)
  Receive Date: 20100915
  Receipt Date: 20100903
  Transmission Date: 20110219
  Serious: Yes (Other)
  Sender: FDA-Public Use
  Company Number: JP-PFIZER INC-2010105442

PATIENT
  Sex: Male

DRUGS (1)
  1. XALATAN [Suspect]
     Indication: GLAUCOMA
     Dosage: UNK
     Route: 031
     Dates: start: 20100201

REACTIONS (2)
  - MACULAR OEDEMA [None]
  - VISUAL ACUITY REDUCED [None]
